FAERS Safety Report 10594379 (Version 1)
Quarter: 2014Q4

REPORT INFORMATION
  Report Type: Report from Study
  Country: US (occurrence: US)
  Receive Date: 20141119
  Receipt Date: 20141119
  Transmission Date: 20150529
  Serious: Yes (Hospitalization, Other)
  Sender: FDA-Public Use
  Company Number: US-GILEAD-2014-0123287

PATIENT
  Age: 64 Year
  Sex: Male

DRUGS (1)
  1. RANOLAZINE [Suspect]
     Active Substance: RANOLAZINE
     Indication: ANGINA PECTORIS
     Dosage: 500 MG, UNK
     Route: 048

REACTIONS (10)
  - Thyroid cancer [Unknown]
  - Narcolepsy [Unknown]
  - Cataract [Unknown]
  - Arthralgia [Unknown]
  - Prostate cancer [Unknown]
  - Pancreatic carcinoma [Unknown]
  - Migraine [Unknown]
  - Anaemia [Unknown]
  - Fall [Unknown]
  - Renal failure [Unknown]
